FAERS Safety Report 12735951 (Version 1)
Quarter: 2016Q3

REPORT INFORMATION
  Report Type: Spontaneous
  Country: US (occurrence: US)
  Receive Date: 20160912
  Receipt Date: 20160912
  Transmission Date: 20161109
  Serious: Yes (Other)
  Sender: FDA-Public Use
  Company Number: US-AMGEN-USASP2016117370

PATIENT
  Age: 64 Year
  Sex: Female

DRUGS (10)
  1. BONIVA [Suspect]
     Active Substance: IBANDRONATE SODIUM
     Indication: PRODUCT USED FOR UNKNOWN INDICATION
     Dosage: UNK
     Route: 065
  2. PREDNISONE. [Concomitant]
     Active Substance: PREDNISONE
     Dosage: UNK
  3. PROGESTERONE. [Concomitant]
     Active Substance: PROGESTERONE
     Dosage: UNK
  4. CORTISONE [Concomitant]
     Active Substance: CORTISONE\HYDROCORTISONE
     Dosage: UNK
  5. VIVELLE-DOT [Concomitant]
     Active Substance: ESTRADIOL
     Dosage: UNK
  6. CALCIUM [Concomitant]
     Active Substance: CALCIUM
     Dosage: UNK
  7. ENBREL [Suspect]
     Active Substance: ETANERCEPT
     Indication: RHEUMATOID ARTHRITIS
     Dosage: 50 MG, UNK ON SUNDAYS
     Route: 065
  8. METHOTREXATE. [Concomitant]
     Active Substance: METHOTREXATE
     Dosage: UNK
  9. VITAMIN D [Concomitant]
     Active Substance: CHOLECALCIFEROL
     Dosage: UNK
  10. FISH OIL [Concomitant]
     Active Substance: FISH OIL
     Dosage: UNK

REACTIONS (21)
  - Swelling [Unknown]
  - Blood pressure abnormal [Unknown]
  - Hyperkeratosis [Unknown]
  - Pityriasis rosea [Unknown]
  - Oropharyngeal pain [Unknown]
  - Muscle strain [Unknown]
  - Skin discolouration [Unknown]
  - Malaise [Unknown]
  - Visual acuity reduced [Unknown]
  - Herpes virus infection [Unknown]
  - Inflammation [Unknown]
  - Foot operation [Unknown]
  - Condition aggravated [Unknown]
  - Arthralgia [Unknown]
  - Chills [Unknown]
  - Blood cholesterol increased [Unknown]
  - Joint dislocation [Unknown]
  - Papilloma viral infection [Unknown]
  - Mobility decreased [Unknown]
  - Gait disturbance [Unknown]
  - Pain in extremity [Unknown]

NARRATIVE: CASE EVENT DATE: 2016
